FAERS Safety Report 10629366 (Version 1)
Quarter: 2014Q4

REPORT INFORMATION
  Report Type: Spontaneous
  Country: US (occurrence: US)
  Receive Date: 20141205
  Receipt Date: 20141205
  Transmission Date: 20150529
  Serious: No
  Sender: FDA-Public Use
  Company Number: US-BRISTOL-MYERS SQUIBB COMPANY-21187257

PATIENT
  Age: 89 Year
  Sex: Female
  Weight: 56.23 kg

DRUGS (1)
  1. SPRYCEL [Suspect]
     Active Substance: DASATINIB
     Indication: LUNG NEOPLASM MALIGNANT
     Dates: start: 20130319

REACTIONS (2)
  - Fatigue [Unknown]
  - Off label use [Unknown]
